FAERS Safety Report 4895846-X (Version None)
Quarter: 2006Q1

REPORT INFORMATION
  Report Type: 
  Country: None (occurrence: None)
  Receive Date: 20060125
  Receipt Date: 20060117
  Transmission Date: 20060701
  Serious: Yes (Life-Threatening)
  Sender: FDA-Public Use
  Company Number: 2006009313

PATIENT
  Age: 44 Year
  Sex: Female
  Weight: 76 kg

DRUGS (1)
  1. LYRICA [Suspect]
     Indication: NECK PAIN
     Dosage: 150 MG (75 MG, 1 D), ORAL
     Route: 048
     Dates: start: 20051218, end: 20051219

REACTIONS (4)
  - BACTERIAL INFECTION [None]
  - DISTURBANCE IN ATTENTION [None]
  - ENCEPHALITIS [None]
  - MENINGITIS [None]
